FAERS Safety Report 15989579 (Version 1)
Quarter: 2019Q1

REPORT INFORMATION
  Report Type: Spontaneous
  Country: US (occurrence: US)
  Receive Date: 20190221
  Receipt Date: 20190221
  Transmission Date: 20190418
  Serious: Yes (Other)
  Sender: FDA-Public Use
  Company Number: None

PATIENT
  Age: 49 Year
  Sex: Female

DRUGS (5)
  1. LAMOTRIGINE 100 MG TABS [Concomitant]
  2. PREDNISONE10 MG TABS [Concomitant]
  3. HYDROXYZINE HCL 25 MG [Concomitant]
     Active Substance: HYDROXYZINE HYDROCHLORIDE
  4. CLONAZEPAM 0.5 MG TABS [Concomitant]
  5. TRINTELLIX [Suspect]
     Active Substance: VORTIOXETINE HYDROBROMIDE
     Indication: DEPRESSION
     Dosage: ?          QUANTITY:14 TABLET(S);?
     Route: 048
     Dates: start: 20190201, end: 20190215

REACTIONS (6)
  - Skin burning sensation [None]
  - Insomnia [None]
  - Swelling face [None]
  - Eye swelling [None]
  - Rash generalised [None]
  - Pain [None]

NARRATIVE: CASE EVENT DATE: 20190217
